FAERS Safety Report 20404877 (Version 2)
Quarter: 2022Q4

REPORT INFORMATION
  Report Type: Spontaneous
  Country: PL (occurrence: PL)
  Receive Date: 20220131
  Receipt Date: 20221003
  Transmission Date: 20230113
  Serious: No
  Sender: FDA-Public Use
  Company Number: PL-LUPIN PHARMACEUTICALS INC.-2022-01043

PATIENT
  Age: 7 Year
  Sex: Male

DRUGS (8)
  1. VANCOMYCIN [Suspect]
     Active Substance: VANCOMYCIN
     Indication: Product used for unknown indication
     Dosage: UNK
     Route: 065
  2. DEXAMETHASONE [Concomitant]
     Active Substance: DEXAMETHASONE
     Indication: Acute lymphocytic leukaemia recurrent
     Dosage: 6 MILLIGRAM/SQ. METER, QD, (SCA 1 COURSE)
     Route: 065
     Dates: start: 201812
  3. VINCRISTINE [Concomitant]
     Active Substance: VINCRISTINE
     Indication: Acute lymphocytic leukaemia recurrent
     Dosage: 1.5 MILLIGRAM/SQ. METER, QD, ON DAY 1, 8, 15 AND 22 OF THE PROTOCOL (SCA 1 COURSE)
     Route: 065
     Dates: start: 201812
  4. IDARUBICIN [Concomitant]
     Active Substance: IDARUBICIN
     Indication: Acute lymphocytic leukaemia recurrent
     Dosage: 6 MILLIGRAM/SQ. METER, QD, ON DAY 1, 8, 15 AND 22 OF THE PROTOCOL (SCA 1 COURSE)
     Route: 065
     Dates: start: 201812
  5. PEG/L-ASPARAGINASE [Concomitant]
     Active Substance: PEGASPARGASE
     Indication: Acute lymphocytic leukaemia recurrent
     Dosage: 1000 U/M2 ON DAY 1 AND 11 OF THE PROTOCOL (SCA 1 COURSE)
     Route: 065
     Dates: start: 201812
  6. CYCLOPHOSPHAMIDE [Concomitant]
     Active Substance: CYCLOPHOSPHAMIDE
     Indication: Acute lymphocytic leukaemia recurrent
     Dosage: 1 G/M2 ON DAY 1 OF THE PROTOCOL (SCA 2 COURSE)
     Route: 065
  7. CYTARABINE [Concomitant]
     Active Substance: CYTARABINE
     Indication: Acute lymphocytic leukaemia recurrent
     Dosage: 75 MILLIGRAM/SQ. METER, QD, ON DAY 3, 4, 5, 6, 10, 11, 12, 13 OF THE PROTOCOL (SCA 2 COURSE)
     Route: 065
  8. THIOGUANINE [Concomitant]
     Active Substance: THIOGUANINE
     Indication: Acute lymphocytic leukaemia recurrent
     Dosage: 60 MILLIGRAM/SQ. METER, QD (SCA 2 COURSE)
     Route: 065

REACTIONS (1)
  - Hypersensitivity [Unknown]
